FAERS Safety Report 8397036 (Version 5)
Quarter: 2014Q3

REPORT INFORMATION
  Report Type: Spontaneous
  Country: JP (occurrence: JP)
  Receive Date: 20120209
  Receipt Date: 20140703
  Transmission Date: 20150326
  Serious: Yes (Hospitalization, Other)
  Sender: FDA-Public Use
  Company Number: JP-BAYER-2010-002509

PATIENT
  Age: 62 Year
  Sex: Male
  Weight: 53.97 kg

DRUGS (13)
  1. IA-CALL [Concomitant]
     Dosage: DAILY DOSE 100 MG
     Route: 013
     Dates: start: 20110614, end: 20110614
  2. TAKEPRON [Concomitant]
     Active Substance: LANSOPRAZOLE
     Indication: GASTROOESOPHAGEAL REFLUX DISEASE
     Dosage: DAILY DOSE 15 MG
     Route: 048
  3. NEXAVAR [Suspect]
     Active Substance: SORAFENIB
     Indication: HEPATOCELLULAR CARCINOMA
     Dosage: DAILY DOSE 800 MG
     Route: 048
     Dates: start: 20101014, end: 20110607
  4. NEXAVAR [Suspect]
     Active Substance: SORAFENIB
     Indication: HEPATOCELLULAR CARCINOMA
     Dosage: DAILY DOSE 400 MG
     Dates: start: 20120626
  5. MIRIPLATIN [Concomitant]
     Active Substance: MIRIPLATIN
     Dosage: DAILY DOSE 70 MG
     Route: 013
     Dates: start: 20110614, end: 20110614
  6. NEXAVAR [Suspect]
     Active Substance: SORAFENIB
     Indication: HEPATOCELLULAR CARCINOMA
     Dosage: DAILY DOSE 400 MG
     Route: 048
     Dates: start: 20100929, end: 20101005
  7. URSO [Concomitant]
     Active Substance: URSODIOL
     Indication: HEPATITIS
     Dosage: 200 MG, TID
     Route: 048
  8. PASTARON [Concomitant]
     Indication: PROPHYLAXIS
     Dosage: UNK
     Route: 061
     Dates: start: 20100922, end: 20111016
  9. LENDORMIN [Concomitant]
     Active Substance: BROTIZOLAM
     Indication: INSOMNIA
     Dosage: DAILY DOSE .25 MG
     Route: 048
  10. BASEN [Concomitant]
     Active Substance: VOGLIBOSE
     Indication: DIABETES MELLITUS
     Dosage: 0.2 MG, TID
     Route: 048
  11. MIRIPLATIN [Concomitant]
     Active Substance: MIRIPLATIN
     Dosage: DAILY DOSE 70 MG
     Route: 013
     Dates: start: 20110210, end: 20110210
  12. NEXAVAR [Suspect]
     Active Substance: SORAFENIB
     Indication: HEPATOCELLULAR CARCINOMA
     Dosage: DAILY DOSE 600 MG
     Route: 048
     Dates: start: 20101006, end: 20101013
  13. NEXAVAR [Suspect]
     Active Substance: SORAFENIB
     Indication: HEPATOCELLULAR CARCINOMA
     Dosage: DAILY DOSE 400 MG
     Route: 048
     Dates: start: 20110621, end: 20111016

REACTIONS (24)
  - Thrombotic cerebral infarction [Recovering/Resolving]
  - Blood lactate dehydrogenase increased [Recovered/Resolved]
  - Aspartate aminotransferase increased [Recovered/Resolved]
  - Blood alkaline phosphatase increased [Recovered/Resolved]
  - Alanine aminotransferase increased [Recovered/Resolved]
  - Diarrhoea [Recovered/Resolved]
  - Blood lactate dehydrogenase increased [Recovered/Resolved]
  - Amylase increased [Recovered/Resolved]
  - Platelet count decreased [Recovering/Resolving]
  - Hyponatraemia [None]
  - Gamma-glutamyltransferase increased [Recovered/Resolved]
  - Gamma-glutamyltransferase increased [Recovered/Resolved]
  - Aspartate aminotransferase increased [Recovered/Resolved]
  - Red blood cell count decreased [Recovered/Resolved]
  - Aspartate aminotransferase increased [Recovered/Resolved]
  - Aspartate aminotransferase increased [Recovered/Resolved]
  - Blood chloride increased [Recovered/Resolved]
  - Ammonia increased [None]
  - Vascular fragility [Not Recovered/Not Resolved]
  - Hypertension [Recovered/Resolved]
  - Palmar-plantar erythrodysaesthesia syndrome [Recovered/Resolved]
  - Ammonia decreased [Recovered/Resolved]
  - Alanine aminotransferase increased [Recovered/Resolved]
  - Metastases to spine [None]

NARRATIVE: CASE EVENT DATE: 201010
